FAERS Safety Report 13927365 (Version 3)
Quarter: 2017Q4

REPORT INFORMATION
  Report Type: Spontaneous
  Country: US (occurrence: US)
  Receive Date: 20170901
  Receipt Date: 20171117
  Transmission Date: 20180320
  Serious: Yes (Other)
  Sender: FDA-Public Use
  Company Number: PHHY2017US127489

PATIENT
  Sex: Female

DRUGS (3)
  1. SYSTANE ULTRA [Suspect]
     Active Substance: POLYETHYLENE GLYCOL 400\PROPYLENE GLYCOL
     Dosage: (6 TO 8 TIMES/DAY)
     Route: 047
  2. SYSTANE ULTRA [Suspect]
     Active Substance: POLYETHYLENE GLYCOL 400\PROPYLENE GLYCOL
     Indication: DRY EYE
     Dosage: (6 TO 8 TIMES/DAY)
     Route: 047
  3. SYSTANE ULTRA [Suspect]
     Active Substance: POLYETHYLENE GLYCOL 400\PROPYLENE GLYCOL
     Dosage: (6 TO 8 TIMES/DAY)
     Route: 047

REACTIONS (5)
  - Corneal disorder [Unknown]
  - Ocular hyperaemia [Unknown]
  - Eye pain [Unknown]
  - Glaucoma [Unknown]
  - Product quality issue [Unknown]

NARRATIVE: CASE EVENT DATE: 201708
